FAERS Safety Report 21513610 (Version 1)
Quarter: 2022Q4

REPORT INFORMATION
  Report Type: Report from Study
  Country: AU (occurrence: AU)
  Receive Date: 20221027
  Receipt Date: 20221027
  Transmission Date: 20230113
  Serious: Yes (Hospitalization)
  Sender: FDA-Public Use
  Company Number: AU-NOVARTISPH-NVSC2022AU238804

PATIENT
  Sex: Male

DRUGS (2)
  1. CANDESARTAN [Suspect]
     Active Substance: CANDESARTAN
     Indication: Right ventricular failure
     Dosage: 32 MG, QD
     Route: 065
  2. ENTRESTO [Suspect]
     Active Substance: SACUBITRIL\VALSARTAN
     Indication: Right ventricular failure
     Dosage: 49/51 MG, BID
     Route: 065
     Dates: start: 20221019

REACTIONS (4)
  - Right ventricular dysfunction [Unknown]
  - Condition aggravated [Unknown]
  - Contraindicated product administered [Unknown]
  - Product use in unapproved indication [Unknown]
